FAERS Safety Report 10086958 (Version 21)
Quarter: 2019Q4

REPORT INFORMATION
  Report Type: Report from Study
  Country: CA (occurrence: CA)
  Receive Date: 20140418
  Receipt Date: 20191204
  Transmission Date: 20200122
  Serious: Yes (Hospitalization, Other)
  Sender: FDA-Public Use
  Company Number: PHHY2012CA123191

PATIENT
  Age: 51 Year
  Sex: Male

DRUGS (1)
  1. SANDOSTATIN LAR DEPOT [Suspect]
     Active Substance: OCTREOTIDE ACETATE
     Indication: PANCREATIC NEUROENDOCRINE TUMOUR
     Dosage: 30 MG, QMO (EVERY 4 WEEKS)
     Route: 030
     Dates: start: 20121126

REACTIONS (31)
  - Pyrexia [Unknown]
  - Vomiting [Unknown]
  - Mucous stools [Unknown]
  - Abdominal rigidity [Unknown]
  - Abdominal pain upper [Recovered/Resolved]
  - Intestinal obstruction [Recovered/Resolved]
  - Intestinal obstruction [Unknown]
  - Blood pressure decreased [Unknown]
  - Pain [Recovered/Resolved]
  - Haematochezia [Unknown]
  - Constipation [Recovering/Resolving]
  - Asthenia [Recovered/Resolved]
  - Abnormal faeces [Unknown]
  - Musculoskeletal chest pain [Unknown]
  - Back pain [Recovered/Resolved]
  - Gastroenteritis [Unknown]
  - Metastases to liver [Not Recovered/Not Resolved]
  - Chest pain [Recovered/Resolved]
  - Blood pressure systolic increased [Unknown]
  - Abdominal discomfort [Unknown]
  - Needle issue [Unknown]
  - Arthralgia [Unknown]
  - Ligament sprain [Unknown]
  - Nausea [Unknown]
  - Musculoskeletal pain [Unknown]
  - Abdominal pain [Recovered/Resolved]
  - Abdominal distension [Unknown]
  - Bowel movement irregularity [Unknown]
  - Diarrhoea [Unknown]
  - Fatigue [Unknown]
  - Abdominal pain [Unknown]

NARRATIVE: CASE EVENT DATE: 20140109
